FAERS Safety Report 6752566-4 (Version None)
Quarter: 2010Q2

REPORT INFORMATION
  Report Type: 
  Country: None (occurrence: None)
  Receive Date: 20100602
  Receipt Date: 20100525
  Transmission Date: 20101027
  Serious: Yes (Life-Threatening, Other)
  Sender: FDA-Public Use
  Company Number: JP-GILEAD-2008-0017573

PATIENT
  Sex: Male

DRUGS (9)
  1. TRUVADA [Suspect]
     Indication: HIV INFECTION
     Route: 048
     Dates: start: 20071020
  2. STOCRIN [Concomitant]
     Indication: HIV INFECTION
     Dates: start: 20071020, end: 20080122
  3. KALETRA [Concomitant]
     Indication: HIV INFECTION
     Dates: start: 20080123
  4. VANCOMYCIN HYDROCHLORIDE [Concomitant]
     Dates: start: 20080118, end: 20080220
  5. ZOVIRAX [Concomitant]
     Dates: start: 20080118, end: 20080227
  6. CRAVIT [Concomitant]
     Dates: start: 20080117, end: 20080305
  7. SANDIMMUNE [Concomitant]
     Dates: start: 20080124, end: 20080214
  8. METHOTREXATE [Concomitant]
     Dates: start: 20080126, end: 20080205
  9. HEPACHRON [Concomitant]
     Dates: start: 20080122, end: 20080224

REACTIONS (5)
  - DRUG INTERACTION [None]
  - FEBRILE NEUTROPENIA [None]
  - GRAFT VERSUS HOST DISEASE [None]
  - PANCYTOPENIA [None]
  - RENAL IMPAIRMENT [None]
